FAERS Safety Report 9146275 (Version 1)
Quarter: 2013Q2

REPORT INFORMATION
  Report Type: Report from Study
  Country: AT (occurrence: AT)
  Receive Date: 20130307
  Receipt Date: 20130405
  Transmission Date: 20140414
  Serious: Yes (Hospitalization)
  Sender: FDA-Public Use
  Company Number: AT-ASTRAZENECA-2013SE13953

PATIENT
  Age: 26531 Day
  Sex: Female

DRUGS (5)
  1. ARIMIDEX [Suspect]
     Indication: BREAST CANCER
     Route: 048
     Dates: start: 20061004, end: 20111010
  2. CONCOR [Concomitant]
     Route: 048
  3. TEBOFORTAN [Concomitant]
     Route: 048
  4. CAL-D-VITAMIN [Concomitant]
     Dosage: DAILY
     Route: 048
  5. XANOR [Concomitant]
     Route: 048

REACTIONS (2)
  - Osteoarthritis [Unknown]
  - Osteoarthritis [Recovered/Resolved]
